FAERS Safety Report 7586152-3 (Version None)
Quarter: 2011Q3

REPORT INFORMATION
  Report Type: 
  Country: None (occurrence: None)
  Receive Date: 20110701
  Receipt Date: 20110628
  Transmission Date: 20111222
  Serious: Yes (Hospitalization)
  Sender: FDA-Public Use
  Company Number: NL-ABBOTT-11P-114-0729787-00

PATIENT
  Sex: Male
  Weight: 89 kg

DRUGS (13)
  1. INSULINE ASPART INJECTION FLUID 100E/ML DISPOSABLE SYRINGE 3ML [Concomitant]
     Indication: DIABETES MELLITUS
     Route: 050
  2. HYDROCHLORIC THIAZIDE [Concomitant]
     Indication: HYPERTENSION
  3. EZETIMIBE/SAMVASTATIN [Concomitant]
     Indication: BLOOD CHOLESTEROL INCREASED
     Route: 048
  4. METOPROLOL TARTRATE [Concomitant]
     Indication: HYPERTENSION
     Route: 048
  5. GLUCAGON POWDER FOR INJECTION FLUID 1 MG FLACON [Concomitant]
     Indication: BLOOD GLUCOSE DECREASED
     Dosage: PER INDICAITON
     Route: 050
  6. METFORMIN HCL [Concomitant]
     Indication: DIABETES MELLITUS
     Route: 048
  7. OMEPRAZOLE [Concomitant]
     Indication: PROPHYLAXIS
  8. ALFUZOSINE [Concomitant]
     Indication: URINARY RETENTION
     Route: 048
  9. PREDNISOLONE [Concomitant]
     Indication: PROPHYLAXIS
  10. HUMIRA [Suspect]
     Indication: RHEUMATOID ARTHRITIS
     Route: 058
     Dates: start: 20110322, end: 20110509
  11. IRBESARTAN [Concomitant]
     Indication: HYPERTENSION
     Route: 048
  12. OMEPRAZOLE [Concomitant]
     Indication: GASTRIC DISORDER
     Route: 048
  13. PREDNISOLONE [Concomitant]
     Indication: INFLAMMATION
     Route: 048

REACTIONS (4)
  - HEADACHE [None]
  - WHITE BLOOD CELL DISORDER [None]
  - MYALGIA [None]
  - PYREXIA [None]
